FAERS Safety Report 5594899-3 (Version None)
Quarter: 2007Q4

REPORT INFORMATION
  Report Type: 
  Country: None (occurrence: None)
  Receive Date: 20071218
  Receipt Date: 20070712
  Transmission Date: 20080405
  Serious: Yes (Hospitalization, Other)
  Sender: FDA-Public Use
  Company Number: 2006118959

PATIENT
  Age: 57 Year
  Sex: Male
  Weight: 87.5 kg

DRUGS (4)
  1. BEXTRA [Suspect]
     Indication: PAIN
     Dosage: 20 MG (1 IN 1 D)
     Dates: start: 20040701
  2. VIOXX [Suspect]
     Indication: ARTHRALGIA
     Dosage: 75 MG (1 IN 1 D),ORAL
     Route: 048
     Dates: start: 20001101, end: 20040801
  3. NAPROXEN [Concomitant]
  4. ACETYLSALICYLIC ACID SRT [Concomitant]

REACTIONS (1)
  - MYOCARDIAL INFARCTION [None]
